FAERS Safety Report 6150293-8 (Version None)
Quarter: 2009Q2

REPORT INFORMATION
  Report Type: 
  Country: None (occurrence: None)
  Receive Date: 20090409
  Receipt Date: 20090330
  Transmission Date: 20091009
  Serious: Yes (Hospitalization, Other)
  Sender: FDA-Public Use
  Company Number: US-MERCK-0709USA02432

PATIENT
  Age: 77 Year
  Sex: Female

DRUGS (1)
  1. FOSAMAX [Suspect]
     Indication: OSTEOPOROSIS
     Route: 048
     Dates: start: 20040901, end: 20060917

REACTIONS (5)
  - ACTINIC KERATOSIS [None]
  - APHTHOUS STOMATITIS [None]
  - BURSA DISORDER [None]
  - EYE DISORDER [None]
  - OSTEONECROSIS [None]
